FAERS Safety Report 20462944 (Version 2)
Quarter: 2022Q4

REPORT INFORMATION
  Report Type: Spontaneous
  Country: US (occurrence: US)
  Receive Date: 20220211
  Receipt Date: 20221026
  Transmission Date: 20230113
  Serious: No
  Sender: FDA-Public Use
  Company Number: US-MYLANLABS-2022M1008709

PATIENT
  Age: 64 Year
  Sex: Male

DRUGS (2)
  1. MUSE [Suspect]
     Active Substance: ALPROSTADIL
     Indication: Product used for unknown indication
     Dosage: 500 MICROGRAM
     Route: 066
     Dates: start: 20220124
  2. MUSE [Suspect]
     Active Substance: ALPROSTADIL
     Dosage: 500 MILLIGRAM
     Route: 066
     Dates: start: 20221002

REACTIONS (2)
  - Drug ineffective [Unknown]
  - Drug delivery system issue [Unknown]

NARRATIVE: CASE EVENT DATE: 20220124
